FAERS Safety Report 21042911 (Version 3)
Quarter: 2025Q2

REPORT INFORMATION
  Report Type: Spontaneous
  Country: FR (occurrence: FR)
  Receive Date: 20220705
  Receipt Date: 20250404
  Transmission Date: 20250717
  Serious: Yes (Other)
  Sender: MERCK SHARP AND DOHME
  Company Number: None

PATIENT

DRUGS (4)
  1. RALTEGRAVIR POTASSIUM [Suspect]
     Active Substance: RALTEGRAVIR POTASSIUM
     Dosage: DOSE DESCRIPTION : 400 MILLIGRAM, TWICE A DAY?DAILY DOSE : 800 MILLIGRAM
  2. ETRAVIRINE [Suspect]
     Active Substance: ETRAVIRINE
     Indication: Product used for unknown indication
     Dosage: DOSE DESCRIPTION : 200 MILLIGRAM, TWICE DAILY?DAILY DOSE : 400 MILLIGRAM
     Route: 048
  3. DARUNAVIR [Suspect]
     Active Substance: DARUNAVIR
     Dosage: DOSE DESCRIPTION : 600 MILLIGRAM, TWICE DAILY?DAILY DOSE : 1200 MILLIGRAM
     Route: 048
  4. RITONAVIR [Suspect]
     Active Substance: RITONAVIR
     Indication: Product used for unknown indication
     Dosage: DOSE DESCRIPTION : 100 MILLIGRAM, TWICE A DAY?DAILY DOSE : 200 MILLIGRAM

REACTIONS (1)
  - Treatment failure [Unknown]
